FAERS Safety Report 5532123-8 (Version None)
Quarter: 2007Q4

REPORT INFORMATION
  Report Type: 
  Country: None (occurrence: None)
  Receive Date: 20071130
  Receipt Date: 20071130
  Transmission Date: 20080405
  Serious: No
  Sender: FDA-Public Use
  Company Number: None

PATIENT
  Sex: Female
  Weight: 59.4212 kg

DRUGS (3)
  1. CELEBREX [Suspect]
     Indication: OSTEOARTHRITIS
     Dosage: 200MG 1 TAB DAILY PO
     Route: 048
     Dates: start: 20071026
  2. MELOXICAM [Suspect]
     Dosage: 15 MG DAILY
  3. IBUPROFEN [Concomitant]

REACTIONS (1)
  - INADEQUATE ANALGESIA [None]
